FAERS Safety Report 9168176 (Version 1)
Quarter: 2013Q1

REPORT INFORMATION
  Report Type: Spontaneous
  Country: US (occurrence: US)
  Receive Date: 20130318
  Receipt Date: 20130318
  Transmission Date: 20140127
  Serious: Yes (Other)
  Sender: FDA-Public Use
  Company Number: US-BAYER-2013-031011

PATIENT
  Age: 67 Year
  Sex: Female
  Weight: 95.24 kg

DRUGS (5)
  1. ALEVE CAPLET/TABLET,MIDOL EXTENDED RELIEF CAPLET [Suspect]
     Indication: ANALGESIC THERAPY
     Dosage: 1 DF, QD
     Route: 048
     Dates: start: 201302, end: 20130307
  2. MULTIVITAMINS [Concomitant]
  3. THYROID THERAPY [Concomitant]
  4. TOPROLOL [Concomitant]
  5. CELEBREX [Concomitant]

REACTIONS (3)
  - Feeling abnormal [Recovered/Resolved]
  - Arrhythmia [Recovered/Resolved]
  - Palpitations [Recovered/Resolved]
